FAERS Safety Report 4488021-4 (Version None)
Quarter: 2004Q4

REPORT INFORMATION
  Report Type: 
  Country: None (occurrence: None)
  Receive Date: 20041028
  Receipt Date: 20041018
  Transmission Date: 20050328
  Serious: Yes (Hospitalization)
  Sender: FDA-Public Use
  Company Number: CH-SOLVAY-00304003754

PATIENT
  Age: 44 Year
  Sex: Male

DRUGS (3)
  1. ORFIRIL [Concomitant]
     Indication: ILL-DEFINED DISORDER
     Dosage: DAILY DOSE: 2 GRAM(S)
     Route: 048
     Dates: start: 20040804
  2. FLOXYFRAL [Suspect]
     Indication: SCHIZOPHRENIA, PARANOID TYPE
     Dosage: DAILY DOSE: 100 MILLIGRAM(S)
     Route: 048
     Dates: start: 20040805, end: 20040910
  3. LEPONEX [Suspect]
     Indication: SCHIZOPHRENIA, PARANOID TYPE
     Dosage: DAILY DOSE: 50 MILLIGRAM(S)
     Route: 048
     Dates: start: 20040805, end: 20040914

REACTIONS (2)
  - EOSINOPHILIA [None]
  - TREATMENT NONCOMPLIANCE [None]
